FAERS Safety Report 4496393-X (Version None)
Quarter: 2004Q4

REPORT INFORMATION
  Report Type: 
  Country: None (occurrence: None)
  Receive Date: 20041104
  Receipt Date: 20041029
  Transmission Date: 20050328
  Serious: Yes (Life-Threatening)
  Sender: FDA-Public Use
  Company Number: US-SHR-03-016968

PATIENT
  Age: 71 Year
  Sex: Male

DRUGS (1)
  1. LEUKINE [Suspect]
     Indication: MALIGNANT MELANOMA
     Dosage: 125 UG/M2/14 DAYS ON + 14 DAYS OFF, SUBCUTANEOUS
     Route: 058
     Dates: start: 20020901

REACTIONS (1)
  - ATRIAL FIBRILLATION [None]
